FAERS Safety Report 8379932-8 (Version None)
Quarter: 2012Q2

REPORT INFORMATION
  Report Type: 
  Country: None (occurrence: None)
  Receive Date: 20120523
  Receipt Date: 20120522
  Transmission Date: 20120825
  Serious: Yes (Other)
  Sender: FDA-Public Use
  Company Number: US-PFIZER INC-2012123857

PATIENT
  Sex: Male
  Weight: 77.098 kg

DRUGS (4)
  1. METOPROLOL [Concomitant]
     Indication: CARDIAC DISORDER
     Dosage: UNK
  2. LYRICA [Suspect]
     Indication: LIMB DISCOMFORT
     Dosage: 50 MG, 2X/DAY
     Dates: start: 20120501, end: 20120521
  3. ACETYLSALICYLIC ACID [Concomitant]
     Indication: CARDIAC DISORDER
     Dosage: 81 MG, UNK
  4. LYRICA [Suspect]
     Indication: GAIT DISTURBANCE

REACTIONS (2)
  - IMPAIRED DRIVING ABILITY [None]
  - DIPLOPIA [None]
